FAERS Safety Report 21399312 (Version 1)
Quarter: 2022Q4

REPORT INFORMATION
  Report Type: Spontaneous
  Country: GB (occurrence: None)
  Receive Date: 20221001
  Receipt Date: 20221001
  Transmission Date: 20230113
  Serious: Yes (Life-Threatening, Hospitalization, Other)
  Sender: FDA-Public Use
  Company Number: GB-BROWN + BURK(UK) LIMITED-ML2022-04729

PATIENT
  Age: 88 Year
  Sex: Female

DRUGS (1)
  1. ATORVASTATIN [Suspect]
     Active Substance: ATORVASTATIN

REACTIONS (2)
  - Fall [Unknown]
  - Immune-mediated myositis [Unknown]
